FAERS Safety Report 24023933 (Version 5)
Quarter: 2024Q3

REPORT INFORMATION
  Report Type: Report from Study
  Country: IT (occurrence: IT)
  Receive Date: 20240627
  Receipt Date: 20240710
  Transmission Date: 20241016
  Serious: No
  Sender: ROCHE
  Company Number: IT-ROCHE-3408779

PATIENT
  Age: 47 Year
  Sex: Female
  Weight: 62.0 kg

DRUGS (13)
  1. ALECTINIB [Suspect]
     Active Substance: ALECTINIB
     Indication: Non-small cell lung cancer metastatic
     Route: 048
     Dates: start: 20220315
  2. LACTULOSE [Concomitant]
     Active Substance: LACTULOSE
     Indication: Constipation
     Dosage: 2 TBSP
     Route: 048
     Dates: start: 20220407
  3. CHOLECALCIFEROL [Concomitant]
     Active Substance: CHOLECALCIFEROL
     Route: 048
     Dates: start: 20230228, end: 20231016
  4. ACETAMINOPHEN [Concomitant]
     Active Substance: ACETAMINOPHEN
     Indication: Back pain
     Route: 048
     Dates: start: 20230427, end: 20230612
  5. ENTEROLACTIS PLUS [Concomitant]
     Route: 048
     Dates: start: 20230327, end: 20230811
  6. OXYCODONE [Concomitant]
     Active Substance: OXYCODONE
     Route: 048
     Dates: start: 20230612, end: 20230717
  7. PREGABALIN [Concomitant]
     Active Substance: PREGABALIN
     Route: 048
     Dates: start: 20230612, end: 20230803
  8. ACETAMINOPHEN\OXYCODONE HYDROCHLORIDE [Concomitant]
     Active Substance: ACETAMINOPHEN\OXYCODONE HYDROCHLORIDE
     Indication: Pain prophylaxis
     Route: 048
     Dates: start: 20230612, end: 20230803
  9. ROSUVASTATIN [Concomitant]
     Active Substance: ROSUVASTATIN
     Route: 048
     Dates: start: 20230811, end: 20231016
  10. TRISCUDIL [Concomitant]
     Route: 048
     Dates: start: 20230811, end: 20231016
  11. LORLATINIB [Concomitant]
     Active Substance: LORLATINIB
     Dates: start: 20230717, end: 202310
  12. CARBOPLATIN [Concomitant]
     Active Substance: CARBOPLATIN
     Dates: start: 20231020
  13. PEMETREXED [Concomitant]
     Active Substance: PEMETREXED
     Dates: start: 20231020

REACTIONS (1)
  - Blood lactate dehydrogenase increased [Not Recovered/Not Resolved]

NARRATIVE: CASE EVENT DATE: 20230530
